FAERS Safety Report 17559444 (Version 1)
Quarter: 2020Q1

REPORT INFORMATION
  Report Type: Spontaneous
  Country: NO (occurrence: NO)
  Receive Date: 20200319
  Receipt Date: 20200319
  Transmission Date: 20200409
  Serious: Yes (Congenital Anomaly, Other)
  Sender: FDA-Public Use
  Company Number: NO-GLAXOSMITHKLINE-NO2020044580

PATIENT
  Age: 8 Month
  Sex: Female

DRUGS (2)
  1. LAMICTAL [Suspect]
     Active Substance: LAMOTRIGINE
     Indication: EPILEPSY
     Dosage: SAME DOSE BEFORE AND DURING THE WHOLE PREGNANCY AND DURING BREASTFEEDING.
     Route: 064
  2. LAMICTAL [Suspect]
     Active Substance: LAMOTRIGINE
     Dosage: SAME DOSE BEFORE AND DURING THE WHOLE PREGNANCY AND DURING BREASTFEEDING.
     Route: 063

REACTIONS (12)
  - Foetal exposure during pregnancy [Unknown]
  - Low set ears [Unknown]
  - Motor developmental delay [Unknown]
  - Akathisia [Unknown]
  - Skull malformation [Unknown]
  - Congenital oral malformation [Unknown]
  - Muscle strength abnormal [Unknown]
  - Anomaly of external ear congenital [Unknown]
  - Hypotonia [Unknown]
  - Myopathy [Unknown]
  - Crying [Unknown]
  - Extensor plantar response [Unknown]
